FAERS Safety Report 22646333 (Version 1)
Quarter: 2023Q2

REPORT INFORMATION
  Report Type: Spontaneous
  Country: FR (occurrence: FR)
  Receive Date: 20230627
  Receipt Date: 20230627
  Transmission Date: 20230721
  Serious: Yes (Hospitalization)
  Sender: FDA-Public Use
  Company Number: FR-JNJFOC-20230638377

PATIENT
  Age: 75 Year
  Sex: Female

DRUGS (1)
  1. RISPERDAL [Suspect]
     Active Substance: RISPERIDONE
     Indication: Dementia Alzheimer^s type
     Route: 048

REACTIONS (3)
  - Hospitalisation [Unknown]
  - Eye disorder [Unknown]
  - Off label use [Unknown]
